FAERS Safety Report 5682313-9 (Version None)
Quarter: 2008Q1

REPORT INFORMATION
  Report Type: 
  Country: None (occurrence: None)
  Receive Date: 20080327
  Receipt Date: 20080318
  Transmission Date: 20080703
  Serious: Yes (Other)
  Sender: FDA-Public Use
  Company Number: JP-WYE-H02623408

PATIENT
  Sex: Female

DRUGS (7)
  1. HYPEN [Suspect]
     Indication: MUSCULOSKELETAL PAIN
     Dosage: 200MG; ONE DOSE
     Route: 048
     Dates: start: 20080122, end: 20080122
  2. ZOLPIDEM TARTRATE [Concomitant]
     Indication: INSOMNIA
     Dosage: UNKNOWN
     Route: 048
     Dates: start: 20070208
  3. SULPIRIDE [Concomitant]
     Indication: DEPRESSION
     Dosage: UNKNOWN
     Route: 048
  4. ALENDRONATE SODIUM [Concomitant]
     Indication: OSTEOPOROSIS
     Dosage: UNKNOWN
     Route: 048
     Dates: start: 20060920, end: 20080124
  5. TEPRENONE [Concomitant]
     Indication: GASTRITIS
     Dosage: UNKNOWN
     Route: 048
  6. OLOPATADINE HYDROCHLORIDE [Concomitant]
     Indication: DERMATITIS ALLERGIC
     Dosage: UNKNOWN
     Route: 048
     Dates: start: 20041204
  7. DIASTASE [Concomitant]
     Indication: DYSPEPSIA
     Dosage: UNKNOWN
     Route: 048

REACTIONS (5)
  - DECREASED APPETITE [None]
  - DRUG ERUPTION [None]
  - PRURITUS [None]
  - PYREXIA [None]
  - URTICARIA [None]
